FAERS Safety Report 19737034 (Version 2)
Quarter: 2021Q3

REPORT INFORMATION
  Report Type: Report from Study
  Country: MX (occurrence: MX)
  Receive Date: 20210823
  Receipt Date: 20210907
  Transmission Date: 20211014
  Serious: Yes (Death)
  Sender: FDA-Public Use
  Company Number: MX-UCBSA-2021040004

PATIENT
  Age: 10 Month
  Sex: Female

DRUGS (1)
  1. LACOSAMIDE. [Suspect]
     Active Substance: LACOSAMIDE
     Indication: EPILEPSY
     Dosage: VIMPAT SYRUP 10 MG/ML
     Route: 048
     Dates: start: 202012, end: 202103

REACTIONS (2)
  - Cardiac arrest [Fatal]
  - Off label use [Unknown]

NARRATIVE: CASE EVENT DATE: 202012
